FAERS Safety Report 5363655-3 (Version None)
Quarter: 2007Q2

REPORT INFORMATION
  Report Type: 
  Country: None (occurrence: None)
  Receive Date: 20070618
  Receipt Date: 20070618
  Transmission Date: 20071010
  Serious: No
  Sender: FDA-Public Use
  Company Number: None

PATIENT
  Age: 55 Year
  Sex: Male
  Weight: 77.1115 kg

DRUGS (1)
  1. CIPROFLOXACIN 500 [Suspect]
     Indication: BIOPSY PROSTATE
     Dosage: 500   1 EVERY 12 HOURS
     Dates: start: 20070423, end: 20070503

REACTIONS (4)
  - ABNORMAL SENSATION IN EYE [None]
  - EAR DISCOMFORT [None]
  - ERYTHEMA [None]
  - HYPOACUSIS [None]
